FAERS Safety Report 15435953 (Version 1)
Quarter: 2018Q3

REPORT INFORMATION
  Report Type: Spontaneous
  Country: US (occurrence: US)
  Receive Date: 20180927
  Receipt Date: 20180927
  Transmission Date: 20181010
  Serious: Yes (Life-Threatening)
  Sender: FDA-Public Use
  Company Number: US-JNJFOC-20180933316

PATIENT

DRUGS (1)
  1. IMBRUVICA [Suspect]
     Active Substance: IBRUTINIB
     Indication: CHRONIC LYMPHOCYTIC LEUKAEMIA
     Route: 048

REACTIONS (6)
  - White blood cell count abnormal [Recovering/Resolving]
  - Cardiac failure congestive [Recovering/Resolving]
  - Depression [Unknown]
  - Atrial fibrillation [Recovering/Resolving]
  - Adverse drug reaction [Unknown]
  - Anxiety [Unknown]
